FAERS Safety Report 11147751 (Version 1)
Quarter: 2015Q2

REPORT INFORMATION
  Report Type: Spontaneous
  Country: US (occurrence: None)
  Receive Date: 20150528
  Receipt Date: 20150528
  Transmission Date: 20150821
  Serious: Yes (Other)
  Sender: FDA-Public Use
  Company Number: None

PATIENT
  Age: 36 Year
  Sex: Female

DRUGS (1)
  1. AMPYRA [Suspect]
     Active Substance: DALFAMPRIDINE
     Dosage: 60.0
     Route: 048
     Dates: start: 20141223

REACTIONS (3)
  - Glycosylated haemoglobin increased [None]
  - Urinary tract infection [None]
  - Hyperglycaemia [None]

NARRATIVE: CASE EVENT DATE: 20141203
